FAERS Safety Report 8770944 (Version 1)
Quarter: 2012Q4

REPORT INFORMATION
  Report Type: 
  Country: US (occurrence: US)
  Receive Date: 20120906
  Receipt Date: 20120906
  Transmission Date: 20130627
  Serious: Yes (Hospitalization, Other)
  Sender: FDA-Public Use
  Company Number: US-BAYER-2012-091117

PATIENT
  Age: 25 Year
  Sex: Female
  Weight: 130 kg

DRUGS (14)
  1. YASMIN [Suspect]
     Indication: ENDOMETRIOSIS
  2. YASMIN [Suspect]
     Indication: MENSTRUATION IRREGULAR
  3. PROPOXYPHENE NAPSYLATE W/ACETAMINOPHENE [Concomitant]
     Dosage: 100 and 650
     Route: 048
     Dates: start: 20000329, end: 20050505
  4. PROCHLORPERAZINE [Concomitant]
     Dosage: 10 mg, UNK
     Route: 048
     Dates: start: 20030906, end: 20051227
  5. PROCHLORPERAZINE [Concomitant]
  6. ZITHROMAX [Concomitant]
     Dosage: 250 mg, UNK
     Dates: start: 20030317, end: 20060606
  7. VICODIN [Concomitant]
     Indication: PAIN
     Dosage: 5 and 500
     Route: 048
     Dates: start: 20030421, end: 20090131
  8. LUPRON [Concomitant]
  9. ZOFRAN [Concomitant]
  10. TORADOL [Concomitant]
  11. MILK OF MAGNESIA [Concomitant]
     Indication: ENDOMETRIOSIS
     Dosage: as needed
  12. MILK OF MAGNESIA [Concomitant]
     Indication: MENSTRUATION IRREGULAR
  13. FENTANYL [Concomitant]
  14. MOTRIN [Concomitant]

REACTIONS (2)
  - Deep vein thrombosis [Recovered/Resolved]
  - Cholecystitis [None]
